FAERS Safety Report 18445738 (Version 1)
Quarter: 2020Q4

REPORT INFORMATION
  Report Type: Report from Study
  Country: FR (occurrence: FR)
  Receive Date: 20201030
  Receipt Date: 20201030
  Transmission Date: 20210114
  Serious: No
  Sender: FDA-Public Use
  Company Number: FR-TAKEDA-FR202034281

PATIENT

DRUGS (1)
  1. HUMAN NORMAL IMMUNOGLOBULIN [Suspect]
     Active Substance: HUMAN IMMUNOGLOBULIN G
     Indication: IMMUNE THROMBOCYTOPENIA
     Dosage: 1 GRAM PER KILOGRAM
     Route: 042

REACTIONS (6)
  - Nausea [Unknown]
  - Chills [Unknown]
  - Pyrexia [Unknown]
  - Blood creatinine increased [Unknown]
  - Headache [Unknown]
  - Hypertension [Unknown]
